FAERS Safety Report 7020684-1 (Version None)
Quarter: 2010Q3

REPORT INFORMATION
  Report Type: 
  Country: None (occurrence: None)
  Receive Date: 20100929
  Receipt Date: 20100917
  Transmission Date: 20110219
  Serious: Yes (Other)
  Sender: FDA-Public Use
  Company Number: PHHY2010US62462

PATIENT
  Sex: Female

DRUGS (8)
  1. NEORAL [Suspect]
     Dosage: 25 MG, BID
  2. CELLCEPT [Concomitant]
  3. SODIUM BICARBONATE [Concomitant]
  4. PROTONIX [Concomitant]
  5. PROCAL [Concomitant]
  6. PREDNISONE [Concomitant]
  7. NEFELIPIN [Concomitant]
  8. COTRIM [Concomitant]

REACTIONS (1)
  - HIP FRACTURE [None]
